FAERS Safety Report 7824149-6 (Version None)
Quarter: 2011Q4

REPORT INFORMATION
  Report Type: 
  Country: None (occurrence: None)
  Receive Date: 20111019
  Receipt Date: 20111007
  Transmission Date: 20120403
  Serious: Yes (Hospitalization)
  Sender: FDA-Public Use
  Company Number: US-ACTELION-A-NJ2011-44637

PATIENT

DRUGS (1)
  1. TRACLEER [Suspect]
     Indication: PULMONARY ARTERIAL HYPERTENSION
     Dosage: UNK
     Route: 048
     Dates: start: 20031101

REACTIONS (5)
  - OEDEMA PERIPHERAL [None]
  - ARTHRITIS [None]
  - ANAEMIA [None]
  - HIP ARTHROPLASTY [None]
  - SCIATICA [None]
